FAERS Safety Report 15119642 (Version 2)
Quarter: 2018Q3

REPORT INFORMATION
  Report Type: Spontaneous
  Country: BE (occurrence: BE)
  Receive Date: 20180709
  Receipt Date: 20180824
  Transmission Date: 20181010
  Serious: Yes (Hospitalization)
  Sender: FDA-Public Use
  Company Number: BE-ASTELLAS-2018US030080

PATIENT
  Age: 54 Year
  Sex: Male

DRUGS (9)
  1. PROGRAFT [Suspect]
     Active Substance: TACROLIMUS
     Dosage: 2MG + 1.5MG, TWICE DAILY
     Route: 065
     Dates: start: 20160127
  2. HYDROCORTISONE. [Suspect]
     Active Substance: HYDROCORTISONE
     Indication: PRODUCT USED FOR UNKNOWN INDICATION
     Dosage: UNK UNK, UNKNOWN FREQ.
     Route: 065
  3. CELLCEPT [Suspect]
     Active Substance: MYCOPHENOLATE MOFETIL\MYCOPHENOLATE MOFETIL HYDROCHLORIDE
     Indication: HEART TRANSPLANT
     Dosage: UNK UNK, UNKNOWN FREQ.
     Route: 065
  4. METHYLPREDNISOLONE. [Concomitant]
     Active Substance: METHYLPREDNISOLONE
     Indication: HEART TRANSPLANT
     Dosage: UNK UNK, UNKNOWN FREQ.
     Route: 065
  5. PROGRAFT [Suspect]
     Active Substance: TACROLIMUS
     Route: 065
     Dates: start: 20151016
  6. PROGRAFT [Suspect]
     Active Substance: TACROLIMUS
     Route: 065
     Dates: start: 20151229
  7. PROGRAFT [Suspect]
     Active Substance: TACROLIMUS
     Dosage: 1.5MG + 1MG, TWICE DAILY
     Route: 065
     Dates: start: 20151104
  8. CELLCEPT [Suspect]
     Active Substance: MYCOPHENOLATE MOFETIL\MYCOPHENOLATE MOFETIL HYDROCHLORIDE
     Dosage: UNK UNK, UNKNOWN FREQ.
     Route: 065
  9. PROGRAFT [Suspect]
     Active Substance: TACROLIMUS
     Indication: HEART TRANSPLANT
     Route: 065
     Dates: start: 20150929

REACTIONS (3)
  - Adrenal insufficiency [Recovered/Resolved]
  - Fatigue [Recovered/Resolved]
  - Diarrhoea [Recovered/Resolved]

NARRATIVE: CASE EVENT DATE: 20151215
